FAERS Safety Report 7090756-4 (Version None)
Quarter: 2010Q4

REPORT INFORMATION
  Report Type: 
  Country: None (occurrence: None)
  Receive Date: 20101012
  Receipt Date: 20100208
  Transmission Date: 20110411
  Serious: Yes (Other)
  Sender: FDA-Public Use
  Company Number: 1000011630

PATIENT
  Age: 76 Year
  Sex: Female
  Weight: 47.6277 kg

DRUGS (6)
  1. LEXAPRO [Suspect]
     Indication: DEPRESSION
     Dosage: 20 MG (20 MG, 1 IN 1 D), ORAL
     Route: 048
     Dates: start: 20050101
  2. METOCLOPRAMIDE [Suspect]
     Indication: IMPAIRED GASTRIC EMPTYING
     Dosage: (3 IN 1 D), ORAL
     Route: 048
     Dates: start: 20090301, end: 20091201
  3. SPIRONOLACTONE [Concomitant]
  4. DIOVAN [Concomitant]
  5. VYTORIN [Concomitant]
  6. METOPROLOL [Concomitant]

REACTIONS (2)
  - PAIN IN JAW [None]
  - TARDIVE DYSKINESIA [None]
